FAERS Safety Report 20903731 (Version 1)
Quarter: 2022Q2

REPORT INFORMATION
  Report Type: Spontaneous
  Country: DE (occurrence: DE)
  Receive Date: 20220602
  Receipt Date: 20220602
  Transmission Date: 20220721
  Serious: Yes (Death, Hospitalization, Other)
  Sender: FDA-Public Use
  Company Number: DE-LUPIN PHARMACEUTICALS INC.-2022-07831

PATIENT
  Age: 71 Year
  Sex: Male

DRUGS (10)
  1. CEFTRIAXONE [Suspect]
     Active Substance: CEFTRIAXONE
     Indication: Paraneoplastic pemphigus
     Dosage: 2 GRAM, QD
     Route: 065
  2. LINEZOLID [Suspect]
     Active Substance: LINEZOLID
     Indication: Paraneoplastic pemphigus
     Dosage: UNK
     Route: 065
  3. VORICONAZOLE [Suspect]
     Active Substance: VORICONAZOLE
     Indication: Paraneoplastic pemphigus
     Dosage: UNK
     Route: 065
     Dates: start: 2021
  4. PREDNISOLONE [Suspect]
     Active Substance: PREDNISOLONE
     Indication: Paraneoplastic pemphigus
     Dosage: 500 MG, QD, HIGH DOSE
     Route: 042
  5. PIPERACILLIN SODIUM\TAZOBACTAM SODIUM [Suspect]
     Active Substance: PIPERACILLIN SODIUM\TAZOBACTAM SODIUM
     Indication: Paraneoplastic pemphigus
     Dosage: 4.5 GRAM, QID
     Route: 065
     Dates: start: 2021
  6. MEROPENEM [Suspect]
     Active Substance: MEROPENEM
     Indication: Paraneoplastic pemphigus
     Dosage: UNK
     Route: 065
     Dates: start: 2021
  7. GANCICLOVIR [Suspect]
     Active Substance: GANCICLOVIR
     Indication: Paraneoplastic pemphigus
     Dosage: UNK
     Route: 065
     Dates: start: 2021
  8. BENDAMUSTINE [Concomitant]
     Active Substance: BENDAMUSTINE
     Indication: Follicular lymphoma stage IV
     Dosage: 125 MG, ON DAY 1 AND 2
     Route: 065
     Dates: start: 202109
  9. OBINUTUZUMAB [Concomitant]
     Active Substance: OBINUTUZUMAB
     Indication: Follicular lymphoma stage IV
     Dosage: 100 MG, STARTING DOSE (ABSOLUTE)
     Route: 065
     Dates: start: 202109
  10. OBINUTUZUMAB [Concomitant]
     Active Substance: OBINUTUZUMAB
     Dosage: 1000 MG, SECOND ADMINISTRATION
     Route: 065

REACTIONS (8)
  - Respiratory failure [Fatal]
  - Pseudomonas infection [Fatal]
  - Cytomegalovirus infection [Fatal]
  - Aspergillus infection [Fatal]
  - Candida infection [Fatal]
  - Pneumomediastinum [Fatal]
  - Drug ineffective for unapproved indication [Unknown]
  - Off label use [Unknown]

NARRATIVE: CASE EVENT DATE: 20210101
